FAERS Safety Report 4937931-X (Version None)
Quarter: 2006Q1

REPORT INFORMATION
  Report Type: 
  Country: None (occurrence: None)
  Receive Date: 20060309
  Receipt Date: 20050506
  Transmission Date: 20060701
  Serious: No
  Sender: FDA-Public Use
  Company Number: US-BRISTOL-MYERS SQUIBB COMPANY-12969424

PATIENT
  Age: 45 Year
  Sex: Female

DRUGS (5)
  1. MONISTAT-1 VAG OINT 6.5% [Suspect]
     Indication: VULVOVAGINAL MYCOTIC INFECTION
     Route: 067
     Dates: start: 20050504, end: 20050504
  2. CONTRACEPTIVE [Concomitant]
  3. MONOPRIL-HCT [Concomitant]
  4. PRILOSEC [Concomitant]
  5. ALLEGRA [Concomitant]

REACTIONS (1)
  - VAGINAL BURNING SENSATION [None]
